FAERS Safety Report 5897938-5 (Version None)
Quarter: 2008Q3

REPORT INFORMATION
  Report Type: 
  Country: None (occurrence: None)
  Receive Date: 20080925
  Receipt Date: 20080919
  Transmission Date: 20090109
  Serious: Yes (Hospitalization)
  Sender: FDA-Public Use
  Company Number: A0729677A

PATIENT
  Age: 66 Year
  Sex: Female
  Weight: 90.9 kg

DRUGS (9)
  1. AVANDIA [Suspect]
     Dosage: 4MG TWICE PER DAY
     Route: 048
     Dates: start: 20030201, end: 20040101
  2. GLUCOPHAGE [Concomitant]
  3. LIPITOR [Concomitant]
  4. ALTACE [Concomitant]
  5. CENTRUM [Concomitant]
  6. ZITHROMAX [Concomitant]
  7. CYTOTEC [Concomitant]
  8. LASIX [Concomitant]
  9. PROCRIT [Concomitant]

REACTIONS (2)
  - CARDIAC FAILURE CONGESTIVE [None]
  - CARDIOMYOPATHY [None]
